FAERS Safety Report 13140050 (Version 1)
Quarter: 2017Q1

REPORT INFORMATION
  Report Type: Spontaneous
  Country: US (occurrence: US)
  Receive Date: 20170123
  Receipt Date: 20170123
  Transmission Date: 20170428
  Serious: No
  Sender: FDA-Public Use
  Company Number: US-UNITED THERAPEUTICS-UNT-2016-014552

PATIENT
  Age: 61 Year
  Sex: Female
  Weight: 62.13 kg

DRUGS (2)
  1. TYVASO [Suspect]
     Active Substance: TREPROSTINIL
     Indication: PULMONARY HYPERTENSION
     Dosage: 6-54 MICROGRAMS, QID
     Dates: start: 20160509
  2. TYVASO [Suspect]
     Active Substance: TREPROSTINIL
     Dosage: UNK

REACTIONS (12)
  - Cough [Not Recovered/Not Resolved]
  - Headache [Unknown]
  - Candida infection [Unknown]
  - Product use issue [Unknown]
  - Nasal congestion [Unknown]
  - Drug effect increased [Unknown]
  - Anxiety [Recovering/Resolving]
  - Sneezing [Unknown]
  - Hypoaesthesia [Recovered/Resolved]
  - Epistaxis [Unknown]
  - Nausea [Unknown]
  - Insomnia [Unknown]

NARRATIVE: CASE EVENT DATE: 201609
